FAERS Safety Report 12454123 (Version 1)
Quarter: 2016Q2

REPORT INFORMATION
  Report Type: Spontaneous
  Country: US (occurrence: US)
  Receive Date: 20160610
  Receipt Date: 20160610
  Transmission Date: 20160815
  Serious: No
  Sender: FDA-Public Use
  Company Number: US-TEVA-661588USA

PATIENT
  Sex: Female
  Weight: 104.87 kg

DRUGS (1)
  1. ENOXAPARIN [Suspect]
     Active Substance: ENOXAPARIN
     Dosage: 40 MG/0.4 ML
     Route: 058
     Dates: start: 20160501

REACTIONS (6)
  - Pruritus [Unknown]
  - Urticaria [Unknown]
  - Nausea [Unknown]
  - Dizziness [Unknown]
  - Food allergy [Unknown]
  - Pain [Unknown]
